FAERS Safety Report 8536143-0 (Version None)
Quarter: 2012Q3

REPORT INFORMATION
  Report Type: 
  Country: None (occurrence: None)
  Receive Date: 20120725
  Receipt Date: 20120717
  Transmission Date: 20120928
  Serious: Yes (Other)
  Sender: FDA-Public Use
  Company Number: US-PFIZER INC-2012171546

PATIENT
  Sex: Female
  Weight: 58.503 kg

DRUGS (7)
  1. LYRICA [Suspect]
     Dosage: 50MG IN THE MORNING AND TWO 50MG AT NIGHT
     Route: 048
     Dates: start: 20120701
  2. ACYCLOVIR [Concomitant]
     Indication: HERPES ZOSTER
     Dosage: UNK
  3. LYRICA [Suspect]
     Dosage: 100 MG, 1X/DAY
  4. PROCARDIA [Suspect]
     Indication: HYPERTENSION
     Dosage: UNK
     Route: 042
     Dates: start: 20120707, end: 20120707
  5. LYRICA [Suspect]
     Indication: HERPES ZOSTER
     Dosage: 50 MG, 2X/DAY
     Route: 048
     Dates: start: 20120707, end: 20120701
  6. LYRICA [Suspect]
     Dosage: 50 MG, 1X/DAY
  7. LISINOPRIL [Concomitant]
     Indication: HYPERTENSION
     Dosage: 10 MG, UNK

REACTIONS (12)
  - URTICARIA [None]
  - INSOMNIA [None]
  - ACNE [None]
  - HYPERTENSION [None]
  - INFLAMMATION [None]
  - PRURITUS [None]
  - BLISTER [None]
  - DRUG INEFFECTIVE [None]
  - HEADACHE [None]
  - DIPLOPIA [None]
  - RASH [None]
  - ERYTHEMA [None]
